FAERS Safety Report 7898775-2 (Version None)
Quarter: 2011Q4

REPORT INFORMATION
  Report Type: 
  Country: None (occurrence: None)
  Receive Date: 20111107
  Receipt Date: 20111027
  Transmission Date: 20120403
  Serious: Yes (Death)
  Sender: FDA-Public Use
  Company Number: GB-CELGENEUS-167-20785-11103344

PATIENT
  Age: 80 Year
  Sex: Male

DRUGS (3)
  1. CYCLOPHOSPHAMIDE [Suspect]
     Dosage: 71.4286 MILLIGRAM
     Route: 048
     Dates: start: 20110420, end: 20110930
  2. THALIDOMIDE [Suspect]
     Dosage: 100 MILLIGRAM
     Route: 048
     Dates: start: 20110420, end: 20110930
  3. DEXAMETHASONE [Suspect]
     Route: 048
     Dates: start: 20110420, end: 20110930

REACTIONS (2)
  - CEREBROVASCULAR ACCIDENT [None]
  - PNEUMONIA ASPIRATION [None]
